FAERS Safety Report 7044123-X (Version None)
Quarter: 2010Q4

REPORT INFORMATION
  Report Type: 
  Country: None (occurrence: None)
  Receive Date: 20101013
  Receipt Date: 20101006
  Transmission Date: 20110411
  Serious: Yes (Hospitalization)
  Sender: FDA-Public Use
  Company Number: FR-PFIZER INC-2010129161

PATIENT
  Age: 75 Year
  Sex: Male

DRUGS (10)
  1. TAHOR [Suspect]
     Dosage: 10 MG, UNK
     Route: 048
  2. INIPOMP [Suspect]
     Dosage: UNK
     Route: 048
     Dates: end: 20100818
  3. TEGRETOL [Suspect]
     Dosage: 600 MG, 2X/DAY
     Route: 048
  4. TRIATEC [Suspect]
     Dosage: 10 MG, DAILY
     Route: 048
  5. KARDEGIC [Concomitant]
     Dosage: 75 MG, UNK
     Route: 048
  6. BISOPROLOL FUMARATE [Concomitant]
     Dosage: 5 MG, UNK
     Route: 048
  7. VASTAREL [Concomitant]
     Dosage: 20MG, 60MG DAILY
     Route: 048
  8. BRONCHODUAL [Concomitant]
     Dosage: 3 DF, DAILY
     Route: 055
  9. BECOTIDE [Concomitant]
     Dosage: 4 DF, DAILY
     Route: 055
  10. PERMIXON [Concomitant]
     Dosage: 160MG, 320MG DAILY
     Route: 048
     Dates: end: 20100818

REACTIONS (1)
  - HYPONATRAEMIA [None]
